FAERS Safety Report 25637444 (Version 1)
Quarter: 2025Q3

REPORT INFORMATION
  Report Type: Spontaneous
  Country: US (occurrence: US)
  Receive Date: 20250804
  Receipt Date: 20250804
  Transmission Date: 20251020
  Serious: Yes (Other)
  Sender: GLAXOSMITHKLINE
  Company Number: US-GLAXOSMITHKLINE INC-US2025AMR087574

PATIENT
  Sex: Female

DRUGS (1)
  1. NUCALA [Suspect]
     Active Substance: MEPOLIZUMAB
     Indication: Pulmonary vasculitis
     Dosage: 300 MG, Q4W

REACTIONS (2)
  - Pulmonary vasculitis [Recovering/Resolving]
  - Condition aggravated [Recovering/Resolving]
